FAERS Safety Report 23825444 (Version 1)
Quarter: 2024Q2

REPORT INFORMATION
  Report Type: Spontaneous
  Country: US (occurrence: US)
  Receive Date: 20240507
  Receipt Date: 20240507
  Transmission Date: 20240716
  Serious: Yes (Other)
  Sender: FDA-Public Use
  Company Number: US-TEVA-VS-3177850

PATIENT
  Sex: Male

DRUGS (1)
  1. ADDERALL [Suspect]
     Active Substance: AMPHETAMINE ASPARTATE\AMPHETAMINE SULFATE\DEXTROAMPHETAMINE SACCHARATE\DEXTROAMPHETAMINE SULFATE
     Indication: Product used for unknown indication
     Dosage: CAPSULES - EXTENDED / SUSTAINED RELEASE
     Route: 065

REACTIONS (4)
  - Attention deficit hyperactivity disorder [Unknown]
  - Vision blurred [Unknown]
  - Drug ineffective [Unknown]
  - Disturbance in attention [Unknown]
